FAERS Safety Report 12946820 (Version 1)
Quarter: 2016Q4

REPORT INFORMATION
  Report Type: Spontaneous
  Country: CN (occurrence: CN)
  Receive Date: 20161116
  Receipt Date: 20161116
  Transmission Date: 20170207
  Serious: Yes (Death, Other)
  Sender: FDA-Public Use
  Company Number: CN-TAKEDA-2016MPI009798

PATIENT

DRUGS (2)
  1. VELCADE [Suspect]
     Active Substance: BORTEZOMIB
     Indication: AMYLOIDOSIS
     Dosage: 1.3 MG/M2, 2/WEEK
     Route: 042
  2. DEXAMETHASONE. [Suspect]
     Active Substance: DEXAMETHASONE
     Indication: AMYLOIDOSIS
     Dosage: 40 MG, 2/WEEK
     Route: 042

REACTIONS (19)
  - Anaemia [Unknown]
  - Constipation [Unknown]
  - Hepatic failure [Fatal]
  - Infection [Fatal]
  - Arrhythmia [Fatal]
  - Neutropenia [Unknown]
  - Gastrointestinal toxicity [Unknown]
  - Hypotension [Unknown]
  - Off label use [Unknown]
  - Acute kidney injury [Unknown]
  - Herpes zoster [Unknown]
  - Pneumonia bacterial [Unknown]
  - Thrombocytopenia [Unknown]
  - Neuropathy peripheral [Unknown]
  - Diarrhoea [Unknown]
  - Hepatotoxicity [Unknown]
  - Product use issue [Unknown]
  - Toxicity to various agents [Fatal]
  - Cardiotoxicity [Unknown]
